FAERS Safety Report 16943541 (Version 1)
Quarter: 2019Q4

REPORT INFORMATION
  Report Type: Spontaneous
  Country: GB (occurrence: GB)
  Receive Date: 20191022
  Receipt Date: 20191022
  Transmission Date: 20200122
  Serious: Yes (Other)
  Sender: FDA-Public Use
  Company Number: GB-TEVA-2019-GB-1123695

PATIENT
  Age: 35 Year
  Sex: Female
  Weight: 106.13 kg

DRUGS (2)
  1. MONTELUKAST [Suspect]
     Active Substance: MONTELUKAST SODIUM
     Dosage: 10MG/ 256 DAYS
     Route: 048
     Dates: start: 20190110, end: 20190923
  2. FEXOFENADINE [Concomitant]
     Active Substance: FEXOFENADINE HYDROCHLORIDE

REACTIONS (2)
  - Suicidal ideation [Recovering/Resolving]
  - Obsessive thoughts [Recovering/Resolving]

NARRATIVE: CASE EVENT DATE: 20190501
